FAERS Safety Report 8168289-3 (Version None)
Quarter: 2012Q1

REPORT INFORMATION
  Report Type: 
  Country: None (occurrence: None)
  Receive Date: 20120227
  Receipt Date: 20120224
  Transmission Date: 20120608
  Serious: Yes (Hospitalization)
  Sender: FDA-Public Use
  Company Number: IT-MERCK-1202ITA00053

PATIENT
  Age: 79 Year
  Sex: Female

DRUGS (6)
  1. ATORVASTATIN [Concomitant]
     Route: 065
  2. HYDROCHLOROTHIAZIDE AND LOSARTAN POTASSIUM [Concomitant]
     Route: 048
  3. FOSAMAX [Suspect]
     Indication: OSTEOPOROSIS
     Route: 048
     Dates: start: 20011124, end: 20111124
  4. BARNIDIPINE HYDROCHLORIDE [Concomitant]
     Route: 048
  5. CALCIUM CARBONATE AND CHOLECALCIFEROL [Concomitant]
     Route: 065
  6. CITALOPRAM [Concomitant]
     Route: 065

REACTIONS (1)
  - FEMUR FRACTURE [None]
